FAERS Safety Report 7967067-5 (Version None)
Quarter: 2011Q4

REPORT INFORMATION
  Report Type: 
  Country: None (occurrence: None)
  Receive Date: 20111209
  Receipt Date: 20111201
  Transmission Date: 20120403
  Serious: Yes (Other)
  Sender: FDA-Public Use
  Company Number: DE-JNJFOC-20111108084

PATIENT
  Sex: Female
  Weight: 62 kg

DRUGS (8)
  1. TRUXAL [Concomitant]
     Indication: SCHIZOAFFECTIVE DISORDER
     Route: 048
     Dates: start: 20050101
  2. OMEPRAZOLE [Concomitant]
     Indication: GASTROOESOPHAGEAL REFLUX DISEASE
     Route: 048
  3. KALINOR BRAUSETABLETTEN [Concomitant]
     Indication: HYPOKALAEMIA
     Route: 048
  4. HYDROCHLOROTHIAZIDE [Concomitant]
     Indication: HYPERTENSION
     Route: 048
  5. RISPERDAL CONSTA [Suspect]
     Indication: SCHIZOAFFECTIVE DISORDER
     Route: 030
     Dates: start: 20050101, end: 20110101
  6. L-THYROX [Concomitant]
     Indication: HYPOTHYROIDISM
     Route: 048
  7. VENLAFAXINE [Concomitant]
     Indication: SCHIZOAFFECTIVE DISORDER
     Route: 048
  8. AN UNKNOWN MEDICATION [Concomitant]
     Indication: SCHIZOAFFECTIVE DISORDER
     Route: 048
     Dates: start: 20090101

REACTIONS (1)
  - THROMBOSIS [None]
